FAERS Safety Report 23443059 (Version 1)
Quarter: 2024Q1

REPORT INFORMATION
  Report Type: Spontaneous
  Country: US (occurrence: None)
  Receive Date: 20240125
  Receipt Date: 20240125
  Transmission Date: 20240410
  Serious: Yes (Hospitalization)
  Sender: FDA-Public Use
  Company Number: None

PATIENT
  Age: 52 Year
  Sex: Male
  Weight: 82 kg

DRUGS (3)
  1. CYTARABINE [Suspect]
     Active Substance: CYTARABINE
     Dates: end: 20231230
  2. SPRYCEL [Suspect]
     Active Substance: DASATINIB
     Dates: end: 20240106
  3. METHOTREXATE [Suspect]
     Active Substance: METHOTREXATE
     Dates: end: 20231229

REACTIONS (7)
  - Febrile neutropenia [None]
  - Anaemia [None]
  - Neutrophil count decreased [None]
  - Platelet count decreased [None]
  - Acute kidney injury [None]
  - Therapy interrupted [None]
  - Septic shock [None]

NARRATIVE: CASE EVENT DATE: 20240107
